FAERS Safety Report 9383832 (Version 4)
Quarter: 2013Q3

REPORT INFORMATION
  Report Type: Spontaneous
  Country: IT (occurrence: IT)
  Receive Date: 20130704
  Receipt Date: 20130813
  Transmission Date: 20140515
  Serious: Yes (Hospitalization)
  Sender: FDA-Public Use
  Company Number: IT-009507513-1306ITA013428

PATIENT
  Age: 17 Year
  Sex: Female
  Weight: 46 kg

DRUGS (1)
  1. LUCILLE [Suspect]
     Indication: ORAL CONTRACEPTION
     Dosage: 1 DOSE UNIT, DAILY
     Route: 048
     Dates: start: 20100815, end: 20101115

REACTIONS (1)
  - Cerebral venous thrombosis [Recovered/Resolved with Sequelae]
